FAERS Safety Report 6391934-X (Version None)
Quarter: 2009Q4

REPORT INFORMATION
  Report Type: 
  Country: None (occurrence: None)
  Receive Date: 20091007
  Receipt Date: 20090929
  Transmission Date: 20100525
  Serious: Yes (Death, Hospitalization)
  Sender: FDA-Public Use
  Company Number: A0800154A

PATIENT
  Age: 65 Year
  Sex: Male
  Weight: 96.8 kg

DRUGS (15)
  1. AVANDIA [Suspect]
     Indication: DIABETES MELLITUS
     Dosage: 4MG PER DAY
     Route: 065
     Dates: start: 20050401, end: 20070501
  2. LISINOPRIL [Concomitant]
  3. METFORMIN [Concomitant]
  4. ASPIRIN [Concomitant]
  5. ACTOS [Concomitant]
  6. LANTUS [Concomitant]
  7. CIALIS [Concomitant]
  8. SIMVASTATIN [Concomitant]
  9. AMITRIPTYLINE [Concomitant]
  10. GLYBURIDE [Concomitant]
  11. LOSARTAN [Concomitant]
  12. OMEPRAZOLE [Concomitant]
  13. VYTORIN [Concomitant]
  14. METOPROLOL [Concomitant]
  15. ACETAMINOPHEN W/ CODEINE TAB [Concomitant]

REACTIONS (19)
  - ACUTE MYOCARDIAL INFARCTION [None]
  - ANXIETY [None]
  - AORTIC STENOSIS [None]
  - AORTIC VALVE SCLEROSIS [None]
  - ARTERIAL OCCLUSIVE DISEASE [None]
  - ATRIAL FIBRILLATION [None]
  - ATRIAL FLUTTER [None]
  - BACK PAIN [None]
  - BRADYCARDIA [None]
  - HYPERLIPIDAEMIA [None]
  - HYPERTENSIVE HEART DISEASE [None]
  - ISCHAEMIC CARDIOMYOPATHY [None]
  - MITRAL VALVE CALCIFICATION [None]
  - MITRAL VALVE INCOMPETENCE [None]
  - MOUTH ULCERATION [None]
  - PERICARDIAL EFFUSION [None]
  - PNEUMONIA [None]
  - RENAL TUBULAR NECROSIS [None]
  - TRICUSPID VALVE INCOMPETENCE [None]
